FAERS Safety Report 5526552-6 (Version None)
Quarter: 2007Q4

REPORT INFORMATION
  Report Type: 
  Country: None (occurrence: None)
  Receive Date: 20071121
  Receipt Date: 20071121
  Transmission Date: 20080405
  Serious: Yes (Death, Hospitalization)
  Sender: FDA-Public Use
  Company Number: None

PATIENT
  Sex: Male
  Weight: 103 kg

DRUGS (2)
  1. VIDAZA [Suspect]
     Indication: MYELODYSPLASTIC SYNDROME
     Dosage: 230MG DAILY IV; 10 CYLES
     Route: 042
     Dates: start: 20061001, end: 20070801
  2. DACOGEN [Suspect]
     Indication: MYELODYSPLASTIC SYNDROME
     Dosage: 50MG DAILY IV; 3 CYCLES
     Route: 042
     Dates: start: 20070801, end: 20071001

REACTIONS (8)
  - BLOOD CREATININE INCREASED [None]
  - HEPATIC ENZYME INCREASED [None]
  - INSOMNIA [None]
  - PNEUMONIA [None]
  - REFUSAL OF TREATMENT BY RELATIVE [None]
  - RESPIRATORY FAILURE [None]
  - TACHYCARDIA [None]
  - TUBERCULOSIS [None]
